FAERS Safety Report 14781366 (Version 1)
Quarter: 2018Q2

REPORT INFORMATION
  Report Type: Spontaneous
  Country: DE (occurrence: DE)
  Receive Date: 20180419
  Receipt Date: 20180419
  Transmission Date: 20180711
  Serious: Yes (Congenital Anomaly)
  Sender: FDA-Public Use
  Company Number: DE-TEVA-2018-DE-882962

PATIENT
  Sex: Male
  Weight: 1.4 kg

DRUGS (9)
  1. CERGEM [Concomitant]
     Active Substance: GEMEPROST
     Indication: LABOUR INDUCTION
     Route: 064
     Dates: start: 20170802, end: 20170802
  2. NOVORAPID [Concomitant]
     Active Substance: INSULIN ASPART
     Indication: TYPE 2 DIABETES MELLITUS
     Dosage: 58 [IE/D ]/ 20-20-18-0
     Route: 064
     Dates: start: 20170310, end: 20170607
  3. LANTUS [Concomitant]
     Active Substance: INSULIN GLARGINE
     Indication: TYPE 2 DIABETES MELLITUS
     Dosage: 24 IU (INTERNATIONAL UNIT) DAILY; 24 [IE/D ]/ 0-0-0-24
     Route: 064
     Dates: start: 20170310, end: 20170607
  4. CYTOTEC [Concomitant]
     Active Substance: MISOPROSTOL
     Indication: LABOUR INDUCTION
     Route: 064
     Dates: start: 20170802, end: 20170802
  5. FOLS?URE [Concomitant]
     Indication: PROPHYLAXIS OF NEURAL TUBE DEFECT
     Route: 064
  6. OXYTOCIN. [Concomitant]
     Active Substance: OXYTOCIN
     Indication: LABOUR INDUCTION
     Route: 064
     Dates: start: 20170802, end: 20170802
  7. DIPIPERON [Suspect]
     Active Substance: PIPAMPERONE
     Indication: DEPRESSION
     Dosage: INDICATIONS NOT CLEAR.
     Route: 064
     Dates: start: 20161222, end: 20170221
  8. QUETIAPINE. [Suspect]
     Active Substance: QUETIAPINE
     Indication: DEPRESSION
     Dosage: 400 MILLIGRAM DAILY;  INDICATIONS NOT CLEAR.
     Route: 064
     Dates: start: 20161222, end: 20170802
  9. METFORMIN [Suspect]
     Active Substance: METFORMIN HYDROCHLORIDE
     Indication: TYPE 2 DIABETES MELLITUS
     Route: 064
     Dates: start: 20161222, end: 20170214

REACTIONS (4)
  - Foetal exposure during pregnancy [Unknown]
  - Renal aplasia [Not Recovered/Not Resolved]
  - Congenital cystic kidney disease [Not Recovered/Not Resolved]
  - Heart disease congenital [Not Recovered/Not Resolved]
